FAERS Safety Report 9305477 (Version 1)
Quarter: 2013Q2

REPORT INFORMATION
  Report Type: Spontaneous
  Country: IN (occurrence: IN)
  Receive Date: 20130523
  Receipt Date: 20130523
  Transmission Date: 20140414
  Serious: Yes (Hospitalization)
  Sender: FDA-Public Use
  Company Number: IN-SUN PHARMACEUTICAL INDUSTRIES LTD-2013SUN00634

PATIENT
  Age: 20 Year
  Sex: Female

DRUGS (2)
  1. PHENYTOIN SODIUM ER CAPS 300MG [Suspect]
     Indication: CONVULSION
     Dosage: 300 MG, OD
     Route: 065
  2. PHENYTOIN SODIUM ER CAPS 300MG [Suspect]
     Indication: PROPHYLAXIS

REACTIONS (4)
  - Cerebellar ataxia [Not Recovered/Not Resolved]
  - Cerebellar cognitive affective syndrome [Not Recovered/Not Resolved]
  - Cerebellar atrophy [Not Recovered/Not Resolved]
  - Toxicity to various agents [Recovering/Resolving]
